FAERS Safety Report 8547238-X (Version None)
Quarter: 2012Q3

REPORT INFORMATION
  Report Type: 
  Country: None (occurrence: None)
  Receive Date: 20120727
  Receipt Date: 20120229
  Transmission Date: 20120928
  Serious: No
  Sender: FDA-Public Use
  Company Number: US-ASTRAZENECA-2012SE14213

PATIENT
  Age: 43 Year
  Sex: Female
  Weight: 77.1 kg

DRUGS (2)
  1. SEROQUEL [Suspect]
     Indication: DEPRESSION
     Route: 048
     Dates: start: 20100101
  2. SEROQUEL [Suspect]
     Indication: SLEEP DISORDER
     Route: 048
     Dates: start: 20100101

REACTIONS (10)
  - MIGRAINE [None]
  - AGITATION [None]
  - FATIGUE [None]
  - SCHIZOPHRENIA [None]
  - INSOMNIA [None]
  - TREMOR [None]
  - OFF LABEL USE [None]
  - BIPOLAR I DISORDER [None]
  - DRUG DOSE OMISSION [None]
  - BIPOLAR DISORDER [None]
